FAERS Safety Report 26210250 (Version 1)
Quarter: 2025Q4

REPORT INFORMATION
  Report Type: Other
  Country: EU (occurrence: EU)
  Receive Date: 20251229
  Receipt Date: 20251229
  Transmission Date: 20260118
  Serious: Yes (Disabling, Other)
  Sender: INCYTE
  Company Number: None

PATIENT
  Age: 76 Year
  Weight: 56 kg

DRUGS (2)
  1. RUXOLITINIB [Suspect]
     Active Substance: RUXOLITINIB
     Indication: Myelofibrosis
     Dosage: UNK
     Route: 061
  2. HYDREA [Suspect]
     Active Substance: HYDROXYUREA
     Indication: Myelofibrosis
     Dosage: UNK
     Route: 061

REACTIONS (1)
  - Neuropathy peripheral [Not Recovered/Not Resolved]
